FAERS Safety Report 8437776-2 (Version None)
Quarter: 2012Q2

REPORT INFORMATION
  Report Type: 
  Country: None (occurrence: None)
  Receive Date: 20120614
  Receipt Date: 20120403
  Transmission Date: 20120825
  Serious: Yes (Other)
  Sender: FDA-Public Use
  Company Number: US-AMGEN-USASP2012017790

PATIENT
  Age: 63 Year
  Sex: Female
  Weight: 55.329 kg

DRUGS (23)
  1. AMLODIPINE BESYLATE [Concomitant]
     Indication: HYPERTENSION
     Dosage: 10 MG, UNK
     Route: 048
  2. SIMVASTATIN [Concomitant]
     Dosage: 10 MG, UNK
     Route: 048
  3. LASIX [Concomitant]
     Dosage: 40 MG, UNK
     Route: 048
  4. ATROVENT HFA [Concomitant]
     Dosage: UNK UNK, QID
     Route: 055
  5. OMEGA 3                            /06850301/ [Concomitant]
     Dosage: 1000 MG, UNK
     Route: 048
  6. ZEMPLAR [Concomitant]
     Dosage: 2 MUG/ML, UNK
     Route: 042
  7. ERTACZO [Concomitant]
     Dosage: 2 UNK, UNK
  8. SPIRIVA [Concomitant]
     Dosage: 18 MUG, QD
     Route: 055
  9. PREDNISONE TAB [Concomitant]
     Dosage: 10 MG, UNK
     Route: 048
  10. ALBUTEROL SULATE [Concomitant]
     Dosage: UNK UNK, PRN
     Route: 055
  11. XOPENEX [Concomitant]
     Dosage: UNK UNK, TID
     Route: 055
  12. LEVOTHYROXINE SODIUM [Concomitant]
     Route: 048
  13. FLONASE [Concomitant]
     Dosage: UNK
     Route: 045
  14. PROAIR HFA [Concomitant]
     Route: 055
  15. PROLIA [Suspect]
     Indication: OSTEOPOROSIS POSTMENOPAUSAL
     Dosage: 60 MG, Q6MO
     Route: 058
     Dates: start: 20120228, end: 20120228
  16. ARANESP [Concomitant]
     Indication: PRODUCT USED FOR UNKNOWN INDICATION
     Dosage: 500 MUG/ML, UNK
  17. NEXIUM [Concomitant]
     Dosage: 40 MG, UNK
     Route: 048
  18. BROVANA [Concomitant]
     Dosage: 15 UNK, UNK
     Route: 055
  19. ASTELIN                            /00085801/ [Concomitant]
     Dosage: 137 MUG, UNK
     Route: 045
  20. CLARITIN                           /00413701/ [Concomitant]
     Dosage: 10 MG, UNK
     Route: 048
  21. AVELOX [Concomitant]
     Dosage: 400 MG, UNK
     Route: 048
  22. LUMIGAN [Concomitant]
     Dosage: 0.01 %, UNK
     Route: 047
  23. ADVAIR DISKUS 100/50 [Concomitant]
     Dosage: UNK UNK, Q12H
     Route: 055

REACTIONS (1)
  - HYPOCALCAEMIA [None]
